FAERS Safety Report 13132507 (Version 3)
Quarter: 2017Q1

REPORT INFORMATION
  Report Type: Spontaneous
  Country: RU (occurrence: RU)
  Receive Date: 20170120
  Receipt Date: 20170220
  Transmission Date: 20170428
  Serious: Yes (Other)
  Sender: FDA-Public Use
  Company Number: RU-SUN PHARMACEUTICAL INDUSTRIES LTD-2017RR-131686

PATIENT
  Age: 31 Year
  Sex: Male

DRUGS (3)
  1. IRINOTECAN [Suspect]
     Active Substance: IRINOTECAN
     Indication: METASTASES TO LUNG
     Dosage: 180 MG/M2
     Route: 065
  2. PANITUMUMAB [Suspect]
     Active Substance: PANITUMUMAB
     Indication: METASTASES TO LUNG
     Dosage: 200 MG/M2, BIWEEKLY
     Route: 065
  3. VEMURAFENIB [Suspect]
     Active Substance: VEMURAFENIB
     Indication: METASTASES TO LUNG
     Dosage: 960 MG, TWICE A DAY
     Route: 065

REACTIONS (7)
  - Alopecia [Unknown]
  - Skin toxicity [Recovering/Resolving]
  - Hypertrichosis [Unknown]
  - Nausea [Unknown]
  - Diarrhoea [Unknown]
  - Paronychia [Recovered/Resolved]
  - Epidermal naevus syndrome [Recovered/Resolved]
